FAERS Safety Report 6526815-1 (Version None)
Quarter: 2010Q1

REPORT INFORMATION
  Report Type: 
  Country: None (occurrence: None)
  Receive Date: 20100105
  Receipt Date: 20091228
  Transmission Date: 20100710
  Serious: Yes (Hospitalization, Other)
  Sender: FDA-Public Use
  Company Number: IT-ABBOTT-09P-083-0609916-00

PATIENT
  Sex: Male

DRUGS (7)
  1. KLACID TABLETS [Suspect]
     Indication: PYREXIA
     Route: 048
     Dates: start: 20090907, end: 20090909
  2. CLENIL [Suspect]
     Indication: PHARYNGITIS
     Dates: start: 20090907, end: 20090909
  3. NUREFLEX [Concomitant]
     Indication: CONJUNCTIVITIS
     Dates: start: 20090922, end: 20090923
  4. ACICLOVIR [Concomitant]
     Indication: STOMATITIS
     Route: 048
     Dates: start: 20090922, end: 20090928
  5. BENTELAN [Concomitant]
     Indication: DRUG USE FOR UNKNOWN INDICATION
     Dates: start: 20090923, end: 20090928
  6. CORSODYL [Concomitant]
     Indication: APHTHOUS STOMATITIS
     Dates: start: 20090921, end: 20090923
  7. DAKTARIN [Concomitant]
     Indication: APHTHOUS STOMATITIS
     Route: 048
     Dates: start: 20090922, end: 20090923

REACTIONS (6)
  - APHTHOUS STOMATITIS [None]
  - BREATH ODOUR [None]
  - CONJUNCTIVITIS [None]
  - ORAL DISORDER [None]
  - ORAL HERPES [None]
  - TONGUE COATED [None]
